FAERS Safety Report 7265038-8 (Version None)
Quarter: 2011Q1

REPORT INFORMATION
  Report Type: 
  Country: None (occurrence: None)
  Receive Date: 20110131
  Receipt Date: 20110121
  Transmission Date: 20110831
  Serious: Yes (Hospitalization, Other)
  Sender: FDA-Public Use
  Company Number: US-ASTELLAS-2010US005050

PATIENT

DRUGS (9)
  1. PANTOPRAZOLE [Concomitant]
     Indication: ANTACID THERAPY
     Dosage: 40 MG, UID/QD
     Route: 048
     Dates: start: 20081011
  2. PROGRAF [Suspect]
     Dosage: 2.5 MG, BID
     Route: 048
     Dates: start: 20110105
  3. CELLCEPT [Concomitant]
     Indication: PANCREAS TRANSPLANT
     Dosage: 500 MG, BID
     Route: 048
     Dates: start: 20081011
  4. SODIUM BICARBONATE [Concomitant]
     Indication: ANTACID THERAPY
     Dosage: 1300 MG, BID
     Route: 048
     Dates: start: 20081011
  5. PROGRAF [Suspect]
     Indication: PANCREAS TRANSPLANT
     Dosage: 1.5 MG, BID
     Route: 048
     Dates: start: 20081011
  6. SULFAMETHOXAZOLE [Concomitant]
     Indication: PROPHYLAXIS
     Dosage: 1 DF, UID/QD
     Route: 048
     Dates: start: 20081011
  7. MAGNESIUM [Concomitant]
     Indication: OSTEOPOROSIS PROPHYLAXIS
     Dosage: 500 MG, BID
     Route: 048
     Dates: start: 20081011
  8. CALCIUM W/VITAMIN D NOS [Concomitant]
     Indication: OSTEOPOROSIS PROPHYLAXIS
     Dosage: 500 MG, BID
     Route: 048
     Dates: start: 20081011
  9. PROGRAF [Suspect]
     Dosage: 3 MG, BID
     Route: 048
     Dates: start: 20110103

REACTIONS (3)
  - CYTOMEGALOVIRUS INFECTION [None]
  - PANCREAS TRANSPLANT REJECTION [None]
  - NON-HODGKIN'S LYMPHOMA [None]
